FAERS Safety Report 8608516-9 (Version None)
Quarter: 2012Q3

REPORT INFORMATION
  Report Type: 
  Country: None (occurrence: None)
  Receive Date: 20120821
  Receipt Date: 20120818
  Transmission Date: 20120928
  Serious: Yes (Other)
  Sender: FDA-Public Use
  Company Number: US-PFIZER INC-2012203439

PATIENT
  Age: 37 Year
  Sex: Male
  Weight: 164 kg

DRUGS (4)
  1. TRAZODONE HYDROCHLORIDE [Suspect]
     Dosage: SPLITTING 50 MG TABLETS INTO HALF DAILY AT NIGHT
     Route: 048
  2. CHANTIX [Suspect]
     Indication: SMOKING CESSATION THERAPY
     Dosage: 0.5 MG, DAILY
     Route: 048
     Dates: start: 20120805, end: 20120801
  3. CHANTIX [Suspect]
     Dosage: 1 MG, 2X/DAY
     Route: 048
     Dates: start: 20120801, end: 20120816
  4. RISPERIDONE [Concomitant]
     Dosage: HALF A TABLET OF 2 MG IN THE MORNING AND ONE TABLET OF 2 MG AT NIGHT
     Route: 048

REACTIONS (5)
  - AGGRESSION [None]
  - AGITATION [None]
  - ABNORMAL DREAMS [None]
  - ABNORMAL BEHAVIOUR [None]
  - MOOD SWINGS [None]
